FAERS Safety Report 16647038 (Version 1)
Quarter: 2019Q3

REPORT INFORMATION
  Report Type: Spontaneous
  Country: US (occurrence: US)
  Receive Date: 20190615
  Receipt Date: 20190615
  Transmission Date: 20191004
  Serious: Yes (Hospitalization)
  Sender: FDA-Public Use
  Company Number: None

PATIENT
  Age: 62 Year
  Sex: Male
  Weight: 57.7 kg

DRUGS (1)
  1. NEXAVAR [Suspect]
     Active Substance: SORAFENIB
     Dates: end: 20190605

REACTIONS (3)
  - Blood bilirubin increased [None]
  - Hepatic enzyme increased [None]
  - International normalised ratio abnormal [None]

NARRATIVE: CASE EVENT DATE: 20190606
